FAERS Safety Report 4470562-7 (Version None)
Quarter: 2004Q4

REPORT INFORMATION
  Report Type: 
  Country: None (occurrence: None)
  Receive Date: 20041011
  Receipt Date: 20040928
  Transmission Date: 20050328
  Serious: Yes (Hospitalization)
  Sender: FDA-Public Use
  Company Number: BE-JNJFOC-20040909077

PATIENT
  Age: 71 Year
  Sex: Female

DRUGS (3)
  1. INFLIXIMAB [Suspect]
     Indication: RHEUMATOID ARTHRITIS
     Route: 042
  2. LEDERTREXATE [Concomitant]
     Indication: RHEUMATOID ARTHRITIS
  3. DELTACORTRIL [Concomitant]
     Indication: RHEUMATOID ARTHRITIS

REACTIONS (2)
  - BRONCHOPULMONARY ASPERGILLOSIS [None]
  - PRURITUS [None]
